FAERS Safety Report 9407304 (Version 2)
Quarter: 2013Q3

REPORT INFORMATION
  Report Type: Spontaneous
  Country: US (occurrence: US)
  Receive Date: 20130718
  Receipt Date: 20130723
  Transmission Date: 20140515
  Serious: No
  Sender: FDA-Public Use
  Company Number: US-TEVA-419687USA

PATIENT
  Sex: Male

DRUGS (2)
  1. NUVIGIL [Suspect]
     Indication: SLEEP APNOEA SYNDROME
     Dosage: 1/2 OF 150 MG TABLET
  2. NUVIGIL [Suspect]
     Dosage: WHOLE TABLET

REACTIONS (3)
  - Agitation [Unknown]
  - Polyuria [Unknown]
  - Drug ineffective [Unknown]
